FAERS Safety Report 9528303 (Version 1)
Quarter: 2013Q3

REPORT INFORMATION
  Report Type: Spontaneous
  Country: US (occurrence: US)
  Receive Date: 20130917
  Receipt Date: 20130917
  Transmission Date: 20140515
  Serious: Yes (Hospitalization, Other)
  Sender: FDA-Public Use
  Company Number: US-AMGEN-USASP2013065153

PATIENT
  Age: 70 Year
  Sex: Female

DRUGS (2)
  1. ENBREL [Suspect]
     Indication: ARTHRITIS
     Dosage: 25 MG, UNK
     Route: 065
     Dates: start: 1998
  2. METHOTREXATE [Concomitant]
     Dosage: 6 TAB, QWK
     Route: 048
     Dates: start: 2010

REACTIONS (2)
  - Cellulitis [Recovered/Resolved]
  - Bronchitis [Unknown]
